FAERS Safety Report 5669174-9 (Version None)
Quarter: 2008Q1

REPORT INFORMATION
  Report Type: 
  Country: None (occurrence: None)
  Receive Date: 20080317
  Receipt Date: 20080307
  Transmission Date: 20080703
  Serious: Yes (Other)
  Sender: FDA-Public Use
  Company Number: IN-JNJFOC-20080301599

PATIENT
  Age: 3 Year
  Sex: Male

DRUGS (4)
  1. PARACETAMOL [Suspect]
  2. PARACETAMOL [Suspect]
     Indication: RESPIRATORY TRACT INFECTION
  3. CEFADROXIL [Suspect]
     Indication: RESPIRATORY TRACT INFECTION
  4. COUGH MIXTURE [Suspect]
     Indication: RESPIRATORY TRACT INFECTION

REACTIONS (1)
  - DRUG ERUPTION [None]
